FAERS Safety Report 9684883 (Version 1)
Quarter: 2013Q4

REPORT INFORMATION
  Report Type: Report from Study
  Country: US (occurrence: US)
  Receive Date: 20131112
  Receipt Date: 20131112
  Transmission Date: 20140711
  Serious: Yes (Hospitalization)
  Sender: FDA-Public Use
  Company Number: US-ROCHE-1302696

PATIENT
  Age: 66 Year
  Sex: Male
  Weight: 68.1 kg

DRUGS (1)
  1. XELODA [Suspect]
     Indication: COLORECTAL CANCER METASTATIC
     Route: 048
     Dates: start: 20130806, end: 20131021

REACTIONS (5)
  - Diarrhoea [Recovered/Resolved]
  - Renal disorder [Recovered/Resolved]
  - Liver disorder [Recovered/Resolved]
  - Platelet disorder [Recovered/Resolved]
  - Weight decreased [Not Recovered/Not Resolved]
